FAERS Safety Report 8728570 (Version 2)
Quarter: 2012Q4

REPORT INFORMATION
  Report Type: 
  Country: JP (occurrence: JP)
  Receive Date: 20120817
  Receipt Date: 20120913
  Transmission Date: 20130627
  Serious: Yes (Other)
  Sender: FDA-Public Use
  Company Number: JP-ASTELLAS-2012JP007526

PATIENT
  Sex: Female

DRUGS (7)
  1. CEFAMEZIN [Suspect]
     Indication: PERITONITIS
     Dosage: UNK
     Route: 065
  2. CEFAMEZIN [Suspect]
     Indication: FUNGAL PERITONITIS
     Dosage: UNK
     Route: 065
  3. FUNGUARD [Suspect]
     Indication: FUNGAL PERITONITIS
     Dosage: UNK
     Route: 065
  4. ITRIZOLE [Suspect]
     Indication: FUNGAL PERITONITIS
     Dosage: UNK
     Route: 048
  5. ISEPAMICIN [Concomitant]
     Indication: PERITONITIS
     Dosage: UNK
     Route: 065
  6. ISEPAMICIN [Concomitant]
     Indication: FUNGAL PERITONITIS
     Route: 065
  7. LEVOFLOXACIN [Concomitant]
     Indication: PERITONITIS
     Dosage: UNK
     Route: 048

REACTIONS (3)
  - Drug ineffective [Unknown]
  - Fungal peritonitis [Unknown]
  - Liver disorder [Recovered/Resolved]
